FAERS Safety Report 5402645-9 (Version None)
Quarter: 2007Q3

REPORT INFORMATION
  Report Type: 
  Country: None (occurrence: None)
  Receive Date: 20070801
  Receipt Date: 20070322
  Transmission Date: 20080115
  Serious: No
  Sender: FDA-Public Use
  Company Number: A0644299A

PATIENT
  Sex: Female

DRUGS (1)
  1. IMITREX [Suspect]
     Indication: MIGRAINE
     Dosage: 25MG UNKNOWN
     Route: 048
     Dates: start: 20070322

REACTIONS (1)
  - NAUSEA [None]
